FAERS Safety Report 24346980 (Version 2)
Quarter: 2024Q4

REPORT INFORMATION
  Report Type: Spontaneous
  Country: US (occurrence: US)
  Receive Date: 20240921
  Receipt Date: 20241109
  Transmission Date: 20250114
  Serious: No
  Sender: Kenvue
  Company Number: US-JNJFOC-20240903468

PATIENT
  Sex: Male

DRUGS (1)
  1. MENS ROGAINE EXTRA STRENGTH [Suspect]
     Active Substance: MINOXIDIL
     Indication: Alopecia
     Dosage: 1 ML 5 TIMES WEEKLY
     Route: 061
     Dates: start: 20240605, end: 2024

REACTIONS (5)
  - Application site pruritus [Recovering/Resolving]
  - Suspected counterfeit product [Unknown]
  - Inappropriate schedule of product administration [Unknown]
  - Underdose [Unknown]
  - Poor quality product administered [Unknown]

NARRATIVE: CASE EVENT DATE: 20240605
